APPROVED DRUG PRODUCT: ANSAID
Active Ingredient: FLURBIPROFEN
Strength: 50MG
Dosage Form/Route: TABLET;ORAL
Application: N018766 | Product #002
Applicant: PHARMACIA AND UPJOHN CO
Approved: Oct 31, 1988 | RLD: Yes | RS: No | Type: DISCN